FAERS Safety Report 17581958 (Version 2)
Quarter: 2020Q1

REPORT INFORMATION
  Report Type: Report from Study
  Country: CA (occurrence: CA)
  Receive Date: 20200325
  Receipt Date: 20200327
  Transmission Date: 20200409
  Serious: Yes (Death)
  Sender: FDA-Public Use
  Company Number: CA-ASTRAZENECA-2020SE41302

PATIENT
  Age: 971 Month
  Sex: Female

DRUGS (1)
  1. IMFINZI [Suspect]
     Active Substance: DURVALUMAB
     Indication: NON-SMALL CELL LUNG CANCER STAGE IIIB
     Route: 042
     Dates: start: 20191230, end: 20200113

REACTIONS (7)
  - Adverse drug reaction [Fatal]
  - Pneumocystis jirovecii pneumonia [Fatal]
  - Pulmonary toxicity [Fatal]
  - Asthenia [Fatal]
  - Dyspnoea [Fatal]
  - Immune-mediated pneumonitis [Fatal]
  - Respiratory failure [Fatal]

NARRATIVE: CASE EVENT DATE: 202001
